FAERS Safety Report 18737366 (Version 2)
Quarter: 2021Q1

REPORT INFORMATION
  Report Type: Spontaneous
  Country: MX (occurrence: MX)
  Receive Date: 20210113
  Receipt Date: 20210211
  Transmission Date: 20210419
  Serious: Yes (Death, Hospitalization, Other)
  Sender: FDA-Public Use
  Company Number: MX-ELI_LILLY_AND_COMPANY-MX202101004124

PATIENT
  Sex: Male
  Weight: 55 kg

DRUGS (10)
  1. ASPIRIN PROTECT [Concomitant]
     Active Substance: ASPIRIN
     Indication: CARDIOVASCULAR DISORDER
     Dosage: UNK, UNKNOWN
  2. ELATEC [Concomitant]
     Indication: CARDIOVASCULAR DISORDER
  3. OLUMIANT [Suspect]
     Active Substance: BARICITINIB
     Indication: COVID-19
     Dosage: 4 MG, UNKNOWN
     Route: 048
  4. DEPO?MEDROL [Concomitant]
     Active Substance: METHYLPREDNISOLONE ACETATE
     Indication: PAIN
  5. GELICART [Concomitant]
     Active Substance: DIETARY SUPPLEMENT
     Indication: OSTEOPOROSIS
     Dosage: UNK, UNKNOWN
  6. PARACETAMOL/TRAMADOL [Concomitant]
     Active Substance: ACETAMINOPHEN\TRAMADOL
     Indication: PAIN
     Dosage: UNK, UNKNOWN
  7. VARTALON [Concomitant]
     Indication: OSTEOPOROSIS
     Dosage: UNK, UNKNOWN
  8. DEXAMETHASONE. [Concomitant]
     Active Substance: DEXAMETHASONE
     Indication: PRODUCT USED FOR UNKNOWN INDICATION
  9. XYLOCAINE [Concomitant]
     Active Substance: LIDOCAINE HYDROCHLORIDE
     Indication: PAIN
     Dosage: UNK, UNKNOWN
  10. BUPRENORPHINE. [Concomitant]
     Active Substance: BUPRENORPHINE
     Indication: PAIN
     Dosage: UNK, UNKNOWN

REACTIONS (5)
  - Neuropathy peripheral [Unknown]
  - Dehydration [Fatal]
  - Cerebral artery embolism [Unknown]
  - Thrombosis [Unknown]
  - Off label use [Unknown]
